FAERS Safety Report 9079926 (Version 1)
Quarter: 2013Q1

REPORT INFORMATION
  Report Type: Spontaneous
  Country: FR (occurrence: FR)
  Receive Date: 20130215
  Receipt Date: 20130215
  Transmission Date: 20140127
  Serious: Yes (Hospitalization, Other)
  Sender: FDA-Public Use
  Company Number: FR-PFIZER INC-2013057631

PATIENT
  Age: 96 Year
  Sex: Female

DRUGS (11)
  1. LYRICA [Suspect]
     Indication: NEURALGIA
     Dosage: 100 MG, 2X/DAY
     Route: 048
     Dates: start: 201210, end: 20121231
  2. KARDEGIC [Concomitant]
     Dosage: 160 MG, 1X/DAY
  3. ALLOPURINOL [Concomitant]
     Dosage: 100 MG DAILY
  4. HEMIGOXINE NATIVELLE [Concomitant]
     Dosage: 1 TABLET DAILY
  5. FUROSEMIDE [Concomitant]
     Dosage: 40 MG DAILY
  6. MOPRAL [Concomitant]
     Dosage: 20 MG, 2X/DAY
  7. TORENTAL [Concomitant]
     Dosage: 400 MG, 2X/DAY
  8. ALDACTONE [Concomitant]
     Dosage: 25 MG, 1X/DAY
  9. KAYEXALATE [Concomitant]
     Dosage: 2 DF DAILY
  10. NITRIDERM TTS [Concomitant]
     Dosage: 15 MG PER 24H
  11. TAREG [Concomitant]
     Dosage: 80 MG, 1X/DAY

REACTIONS (8)
  - Confusional state [Recovered/Resolved]
  - Hallucination [Recovered/Resolved]
  - Renal failure acute [Unknown]
  - Head injury [Unknown]
  - Fall [Unknown]
  - Polyuria [Unknown]
  - Decreased appetite [Unknown]
  - Insomnia [Unknown]
